FAERS Safety Report 7875708-6 (Version None)
Quarter: 2011Q4

REPORT INFORMATION
  Report Type: 
  Country: None (occurrence: None)
  Receive Date: 20111031
  Receipt Date: 20111024
  Transmission Date: 20120403
  Serious: Yes (Other)
  Sender: FDA-Public Use
  Company Number: US-BIOMARINP-001863

PATIENT
  Sex: Male

DRUGS (3)
  1. HYDROCHLOROTHIAZIDE [Concomitant]
     Indication: MATERNAL DRUGS AFFECTING FOETUS
     Route: 064
  2. PROCARDIA [Concomitant]
     Indication: MATERNAL DRUGS AFFECTING FOETUS
     Route: 064
  3. KUVAN [Suspect]
     Indication: PHENYLKETONURIA
     Route: 064

REACTIONS (6)
  - RESPIRATORY DISTRESS [None]
  - HYPERBILIRUBINAEMIA NEONATAL [None]
  - HYPERBILIRUBINAEMIA [None]
  - PREMATURE BABY [None]
  - CAESAREAN SECTION [None]
  - MATERNAL DRUGS AFFECTING FOETUS [None]
